FAERS Safety Report 16775720 (Version 1)
Quarter: 2019Q3

REPORT INFORMATION
  Report Type: Spontaneous
  Country: AU (occurrence: AU)
  Receive Date: 20190905
  Receipt Date: 20190905
  Transmission Date: 20191005
  Serious: Yes (Death, Hospitalization, Other)
  Sender: FDA-Public Use
  Company Number: AU-MYLANLABS-2019M1082509

PATIENT
  Age: 9 Decade
  Sex: Female
  Weight: 48.6 kg

DRUGS (1)
  1. CLINDAMYCIN. [Suspect]
     Active Substance: CLINDAMYCIN
     Indication: LOCALISED INFECTION
     Dosage: 150 MILLIGRAM, TID
     Route: 048
     Dates: start: 20190131

REACTIONS (9)
  - Clostridium difficile infection [Fatal]
  - Hypoxia [Unknown]
  - Aspiration [Unknown]
  - Abdominal distension [Unknown]
  - Colitis [Unknown]
  - Cyanosis [Unknown]
  - Cardiac arrest [Unknown]
  - Diarrhoea [Unknown]
  - Aphasia [Unknown]

NARRATIVE: CASE EVENT DATE: 2019
